FAERS Safety Report 5024542-3 (Version None)
Quarter: 2006Q2

REPORT INFORMATION
  Report Type: 
  Country: None (occurrence: None)
  Receive Date: 20060607
  Receipt Date: 20060526
  Transmission Date: 20061013
  Serious: Yes (Hospitalization)
  Sender: FDA-Public Use
  Company Number: 2006070380

PATIENT
  Sex: Male

DRUGS (7)
  1. LIPITOR [Suspect]
     Indication: HYPERLIPIDAEMIA
     Dosage: 10 MG (PER DAY), ORAL
     Route: 048
  2. FAMOTIDINE [Concomitant]
  3. ALLOPURINOL [Concomitant]
  4. URALYT (ARNICA EXTRACT, CONVALLARIA GLYCOSIDES, ECHINACEA ANGUSTIFOLIA [Concomitant]
  5. GASMOTIN (MOSAPRIDE CITRATE) [Concomitant]
  6. ALLEGRA [Concomitant]
  7. PREDNISOLONE [Concomitant]

REACTIONS (1)
  - BLOOD AMYLASE INCREASED [None]
